FAERS Safety Report 9438824 (Version 1)
Quarter: 2013Q3

REPORT INFORMATION
  Report Type: Spontaneous
  Country: US (occurrence: US)
  Receive Date: 20130802
  Receipt Date: 20130802
  Transmission Date: 20140515
  Serious: Yes (Other)
  Sender: FDA-Public Use
  Company Number: US-ABBOTT-13P-163-1125541-00

PATIENT
  Sex: Male
  Weight: 108.51 kg

DRUGS (14)
  1. VICODIN HP [Suspect]
     Indication: PAIN
     Dosage: 10/325MG EVERY 4-6 HOURS FOR PAIN
     Dates: start: 2009
  2. GLUCOTROL [Concomitant]
     Indication: DIABETES MELLITUS
     Dates: start: 2001
  3. LYRICA [Concomitant]
     Indication: DIABETIC NEUROPATHY
     Dates: start: 2004, end: 200901
  4. BABY ASPIRIN [Concomitant]
     Indication: PRODUCT USED FOR UNKNOWN INDICATION
  5. JANUVIA [Concomitant]
     Indication: PRODUCT USED FOR UNKNOWN INDICATION
  6. ACTOS [Concomitant]
     Indication: PRODUCT USED FOR UNKNOWN INDICATION
  7. GLUCOPHAGE [Concomitant]
     Indication: PRODUCT USED FOR UNKNOWN INDICATION
  8. CYMBALTA [Concomitant]
     Indication: PRODUCT USED FOR UNKNOWN INDICATION
  9. WELLBUTRIN [Concomitant]
     Indication: PRODUCT USED FOR UNKNOWN INDICATION
  10. TRILEPTAL [Concomitant]
     Indication: PRODUCT USED FOR UNKNOWN INDICATION
  11. RELAFEN [Concomitant]
     Indication: PRODUCT USED FOR UNKNOWN INDICATION
  12. DAYPRO [Concomitant]
     Indication: PRODUCT USED FOR UNKNOWN INDICATION
  13. LISINOPRIL [Concomitant]
     Indication: PRODUCT USED FOR UNKNOWN INDICATION
  14. NEURONTIN [Concomitant]
     Indication: PRODUCT USED FOR UNKNOWN INDICATION

REACTIONS (5)
  - Foot amputation [Unknown]
  - Neuropathy peripheral [Unknown]
  - Abasia [Unknown]
  - Dyspnoea [Unknown]
  - Drug ineffective [Unknown]
